FAERS Safety Report 15053761 (Version 1)
Quarter: 2018Q2

REPORT INFORMATION
  Report Type: Report from Study
  Country: US (occurrence: US)
  Receive Date: 20180622
  Receipt Date: 20180622
  Transmission Date: 20180711
  Serious: No
  Sender: FDA-Public Use
  Company Number: US-AMGEN-USASL2016050039

PATIENT
  Age: 27 Year
  Sex: Female

DRUGS (1)
  1. NPLATE [Suspect]
     Active Substance: ROMIPLOSTIM
     Indication: PRODUCT USED FOR UNKNOWN INDICATION
     Dosage: UNK
     Route: 065
     Dates: end: 20160314

REACTIONS (5)
  - Platelet count decreased [Unknown]
  - Pain [Unknown]
  - Drug effect decreased [Unknown]
  - Spleen disorder [Unknown]
  - Back pain [Unknown]

NARRATIVE: CASE EVENT DATE: 2016
